FAERS Safety Report 6808642-0 (Version None)
Quarter: 2010Q2

REPORT INFORMATION
  Report Type: 
  Country: None (occurrence: None)
  Receive Date: 20100629
  Receipt Date: 20090831
  Transmission Date: 20101027
  Serious: No
  Sender: FDA-Public Use
  Company Number: US-PFIZER INC-2009234869

PATIENT
  Sex: Male
  Weight: 77.1 kg

DRUGS (4)
  1. VIAGRA [Suspect]
     Indication: ERECTILE DYSFUNCTION
     Dosage: 25 MG, AS NEEDED
     Route: 048
     Dates: start: 20090624
  2. NITROSTAT [Suspect]
  3. OXYCONTIN [Suspect]
     Indication: PAIN
  4. VICODIN [Concomitant]
     Dosage: UNK
     Route: 048

REACTIONS (4)
  - HEADACHE [None]
  - HIATUS HERNIA [None]
  - LABELLED DRUG-DRUG INTERACTION MEDICATION ERROR [None]
  - MALAISE [None]
